FAERS Safety Report 17886983 (Version 1)
Quarter: 2020Q2

REPORT INFORMATION
  Report Type: Spontaneous
  Country: PL (occurrence: PL)
  Receive Date: 20200611
  Receipt Date: 20200611
  Transmission Date: 20200714
  Serious: Yes (Other)
  Sender: FDA-Public Use
  Company Number: NVSC2020PL146835

PATIENT
  Age: 75 Year
  Sex: Female

DRUGS (2)
  1. NEBISPES [Concomitant]
     Indication: ARTERIOSCLEROSIS
     Dosage: UNK
     Route: 065
  2. ESTRADIOL + NORETHISTERONE ACETATE (ORAL) [Suspect]
     Active Substance: ESTRADIOL\NORETHINDRONE ACETATE
     Indication: HORMONE REPLACEMENT THERAPY
     Dosage: HALF OF THE PLASTER APPLIED TO THE SKIN
     Route: 062

REACTIONS (5)
  - Unevaluable event [Unknown]
  - Asthenia [Unknown]
  - Poor peripheral circulation [Unknown]
  - Bedridden [Unknown]
  - Off label use [Unknown]
